FAERS Safety Report 9767736 (Version 2)
Quarter: 2013Q4

REPORT INFORMATION
  Report Type: Spontaneous
  Country: US (occurrence: US)
  Receive Date: 20131217
  Receipt Date: 20131217
  Transmission Date: 20140711
  Serious: Yes (Other)
  Sender: FDA-Public Use
  Company Number: US-BMSGILMSD-2009-0024445

PATIENT
  Age: 47 Year
  Sex: Male
  Weight: 70.76 kg

DRUGS (15)
  1. VIREAD [Suspect]
     Indication: HIV INFECTION
     Route: 048
     Dates: start: 200205, end: 20060406
  2. VIDEX EC [Concomitant]
     Indication: HIV INFECTION
     Dates: start: 200205
  3. LOPINAVIR WITH RITONAVIR [Concomitant]
     Indication: HIV INFECTION
     Dates: start: 200205
  4. VICODIN [Concomitant]
     Indication: PAIN
  5. OXYCONTIN [Concomitant]
  6. MIACALCIN [Concomitant]
  7. OS-CAL [Concomitant]
  8. MEGACE [Concomitant]
  9. MEPRON [Concomitant]
  10. GLUCERNA [Concomitant]
  11. NEURONTIN [Concomitant]
  12. MULTIVITAMIN/MINERAL TABLET [Concomitant]
  13. TRAZODONE [Concomitant]
  14. FLONASE [Concomitant]
  15. COMPAZINE [Concomitant]
     Indication: NAUSEA

REACTIONS (5)
  - Renal failure [Unknown]
  - Fanconi syndrome acquired [Unknown]
  - Hypophosphataemia [Unknown]
  - Osteomalacia [Unknown]
  - Bone pain [Unknown]
